FAERS Safety Report 10177542 (Version 3)
Quarter: 2014Q2

REPORT INFORMATION
  Report Type: Spontaneous
  Country: US (occurrence: US)
  Receive Date: 20140516
  Receipt Date: 20140611
  Transmission Date: 20141212
  Serious: Yes (Death, Hospitalization)
  Sender: FDA-Public Use
  Company Number: US-BAXTER-2014BAX024267

PATIENT
  Sex: Male

DRUGS (2)
  1. DIANEAL PD2 [Suspect]
     Indication: RENAL FAILURE CHRONIC
     Route: 033
     Dates: end: 20131113
  2. DIANEAL PD2 [Suspect]
     Indication: PERITONEAL DIALYSIS

REACTIONS (2)
  - Myocardial infarction [Fatal]
  - Coronary artery occlusion [Unknown]
